FAERS Safety Report 18461807 (Version 1)
Quarter: 2020Q4

REPORT INFORMATION
  Report Type: Spontaneous
  Country: US (occurrence: US)
  Receive Date: 20201103
  Receipt Date: 20201103
  Transmission Date: 20210114
  Serious: Yes (Death)
  Sender: FDA-Public Use
  Company Number: None

PATIENT
  Sex: Female

DRUGS (12)
  1. SPRYCEL [Suspect]
     Active Substance: DASATINIB
     Indication: CHRONIC MYELOID LEUKAEMIA
     Route: 048
     Dates: start: 20200815
  2. AMBIEN [Concomitant]
     Active Substance: ZOLPIDEM TARTRATE
  3. ASPIRIN 325MG [Concomitant]
     Active Substance: ASPIRIN
  4. LEVETIRACETAM 750MG [Concomitant]
     Active Substance: LEVETIRACETAM
  5. ENTOCORT EC 3MG/24HR [Concomitant]
  6. LAMOTRIGINE 25MG [Concomitant]
     Active Substance: LAMOTRIGINE
  7. LISINOPRIL. [Concomitant]
     Active Substance: LISINOPRIL
  8. DEXILANT [Concomitant]
     Active Substance: DEXLANSOPRAZOLE
  9. PRIMIDONE 50MG [Concomitant]
     Active Substance: PRIMIDONE
  10. LEVOTHYROXINE 100MCG [Concomitant]
     Active Substance: LEVOTHYROXINE
  11. DICYCLOMINE 20MG [Concomitant]
  12. XANAX [Concomitant]
     Active Substance: ALPRAZOLAM

REACTIONS (1)
  - Death [None]
